FAERS Safety Report 7883290-2 (Version None)
Quarter: 2011Q4

REPORT INFORMATION
  Report Type: 
  Country: None (occurrence: None)
  Receive Date: 20111102
  Receipt Date: 20111025
  Transmission Date: 20120403
  Serious: Yes (Hospitalization)
  Sender: FDA-Public Use
  Company Number: PHEH2011US02710

PATIENT
  Sex: Male
  Weight: 81.633 kg

DRUGS (26)
  1. BACTRIM [Concomitant]
     Dosage: 400 MG, UNK
  2. AMBIEN [Concomitant]
     Dosage: 05 MG, UNK
     Dates: start: 20100409
  3. CARDIZEM [Concomitant]
     Dosage: 120 MG, UNK
     Dates: start: 20110827
  4. XANAX [Concomitant]
     Dosage: 0.25 MG, UNK
     Dates: start: 20110224
  5. POTASSIUM CHLORIDE [Concomitant]
     Dosage: 08 MEQ, UNK
  6. EXJADE [Suspect]
     Indication: MYELODYSPLASTIC SYNDROME
     Dosage: 500 MG, DAILY
     Route: 048
     Dates: start: 20100714, end: 20111020
  7. PRILOSEC [Concomitant]
     Dosage: 10 MG, UNK
     Dates: start: 20100409, end: 20110827
  8. PROTONIX [Concomitant]
     Dosage: 40 MG, UNK
  9. TRAZODONE HYDROCHLORIDE [Concomitant]
     Dosage: 50 MG, UNK
     Dates: start: 20110827
  10. ULTRAVATE [Concomitant]
  11. METOLAZONE [Concomitant]
     Dosage: 2.5 MG, UNK
  12. LASIX [Concomitant]
     Dosage: 40 MG, UNK
     Dates: start: 20110409
  13. BISOPROLOL FUMARATE [Concomitant]
     Dosage: 05 MG, UNK
     Dates: start: 20100409
  14. HYDRALAZINE HCL [Concomitant]
     Dosage: 25 MG, UNK
  15. FOLIC ACID [Concomitant]
     Dosage: 01 MG, UNK
     Dates: start: 20110827
  16. PREDNISONE [Concomitant]
     Dosage: 05 MG, UNK
     Dates: start: 20110409
  17. VITAMIN B COMPLEX CAP [Concomitant]
     Dates: start: 20110224
  18. ASPIRIN [Concomitant]
  19. ALENDRONATE SODIUM [Concomitant]
     Dosage: 70 MG, UNK
     Dates: start: 20110827
  20. REVLIMID [Concomitant]
     Dosage: 05 MG, UNK
     Dates: start: 20110409
  21. LIPITOR [Concomitant]
     Dosage: 10 MG, UNK
     Dates: start: 20100409
  22. COQ10 [Concomitant]
     Dosage: 100 MG, UNK
     Dates: start: 20110827
  23. GABAPENTIN [Concomitant]
     Dosage: 600 MG, UNK
     Dates: start: 20100409
  24. ROFLUMILAST [Concomitant]
     Dosage: 500 UG, UNK
     Dates: start: 20110827
  25. NORVASC [Concomitant]
     Dosage: 2.5 MG, UNK
     Dates: start: 20100409
  26. BENADRYL [Concomitant]
     Dosage: 25 MG, UNK
     Dates: start: 20110224

REACTIONS (4)
  - CONFUSIONAL STATE [None]
  - ASTHENIA [None]
  - PARANOIA [None]
  - FLUID RETENTION [None]
